FAERS Safety Report 10193213 (Version 1)
Quarter: 2014Q2

REPORT INFORMATION
  Report Type: Spontaneous
  Country: US (occurrence: US)
  Receive Date: 20140524
  Receipt Date: 20140524
  Transmission Date: 20141212
  Serious: No
  Sender: FDA-Public Use
  Company Number: US-SA-2014SA012141

PATIENT
  Age: 65 Year
  Sex: Female

DRUGS (3)
  1. LANTUS SOLOSTAR [Suspect]
     Dosage: DOSE:30 UNIT(S)
     Route: 065
  2. CORTICOSTEROID NOS [Suspect]
  3. SOLOSTAR [Concomitant]

REACTIONS (14)
  - Dizziness [Recovering/Resolving]
  - Palpitations [Recovering/Resolving]
  - Feeling hot [Recovering/Resolving]
  - Heart rate irregular [Recovering/Resolving]
  - Asthenia [Unknown]
  - Dysgeusia [Unknown]
  - Adverse event [Unknown]
  - Salivary gland pain [Unknown]
  - Injection site haemorrhage [Unknown]
  - Blood glucose increased [Unknown]
  - Blood glucose decreased [Unknown]
  - Hyperhidrosis [Unknown]
  - Tremor [Unknown]
  - Malaise [Unknown]
